FAERS Safety Report 5505791-4 (Version None)
Quarter: 2007Q4

REPORT INFORMATION
  Report Type: 
  Country: None (occurrence: None)
  Receive Date: 20071102
  Receipt Date: 20071029
  Transmission Date: 20080405
  Serious: Yes (Other)
  Sender: FDA-Public Use
  Company Number: US-ROXANE LABORATORIES, INC-2007-BP-23479RO

PATIENT
  Age: 3 Year
  Sex: Male

DRUGS (8)
  1. DIGOXIN [Suspect]
  2. FUROSEMIDE [Suspect]
  3. FLUCONAZOLE [Suspect]
     Indication: CANDIDIASIS
  4. RANITIDINE [Suspect]
  5. PREDNISOLONE [Suspect]
     Indication: ASTHMA
  6. MONTELUKAST SODIUM [Suspect]
     Indication: ASTHMA
  7. ALBUTEROL [Suspect]
     Indication: ASTHMA
  8. LEVALBUTEROL HCL [Suspect]
     Indication: ASTHMA

REACTIONS (2)
  - ORAL CANDIDIASIS [None]
  - POLYP [None]
